FAERS Safety Report 12287178 (Version 1)
Quarter: 2016Q2

REPORT INFORMATION
  Report Type: Spontaneous
  Country: US (occurrence: US)
  Receive Date: 20160420
  Receipt Date: 20160420
  Transmission Date: 20160815
  Serious: No
  Sender: FDA-Public Use
  Company Number: US-MYLANLABS-2016M1001342

PATIENT
  Age: 55 Year
  Sex: Male
  Weight: 115.65 kg

DRUGS (2)
  1. PALIPERIDONE EXTENDED-RELEASE TABLETS [Suspect]
     Active Substance: PALIPERIDONE
     Indication: PANIC ATTACK
     Dosage: 6 MG, QD
     Route: 048
     Dates: start: 201511, end: 201511
  2. PALIPERIDONE EXTENDED-RELEASE TABLETS [Suspect]
     Active Substance: PALIPERIDONE
     Indication: OFF LABEL USE

REACTIONS (4)
  - Insomnia [None]
  - Tachyphrenia [None]
  - Drug ineffective for unapproved indication [Recovered/Resolved]
  - Therapeutic response changed [Recovered/Resolved]

NARRATIVE: CASE EVENT DATE: 201511
